FAERS Safety Report 7131333-6 (Version None)
Quarter: 2010Q4

REPORT INFORMATION
  Report Type: 
  Country: None (occurrence: None)
  Receive Date: 20101201
  Receipt Date: 20101122
  Transmission Date: 20110411
  Serious: Yes (Hospitalization)
  Sender: FDA-Public Use
  Company Number: US-ROCHE-708641

PATIENT
  Sex: Female
  Weight: 87.7 kg

DRUGS (10)
  1. BONIVA [Suspect]
     Indication: OSTEOPENIA
     Route: 048
     Dates: start: 20100601
  2. COUMADIN [Concomitant]
  3. LANTUS [Concomitant]
  4. MICARDIS [Concomitant]
  5. CELEBREX [Concomitant]
  6. LIPITOR [Concomitant]
  7. GLIPIZIDE [Concomitant]
  8. LASIX [Concomitant]
  9. JANUMET [Concomitant]
  10. GABAPENTIN [Concomitant]

REACTIONS (4)
  - BACK PAIN [None]
  - CHEST PAIN [None]
  - DEHYDRATION [None]
  - DIARRHOEA [None]
